FAERS Safety Report 14549677 (Version 1)
Quarter: 2018Q1

REPORT INFORMATION
  Report Type: Spontaneous
  Country: US (occurrence: US)
  Receive Date: 20180219
  Receipt Date: 20180219
  Transmission Date: 20180509
  Serious: No
  Sender: FDA-Public Use
  Company Number: US-SUNOVION-2018SUN000466

PATIENT
  Age: 76 Year
  Sex: Male

DRUGS (5)
  1. XARELTO [Concomitant]
     Active Substance: RIVAROXABAN
     Dosage: UNK
  2. BROVANA [Suspect]
     Active Substance: ARFORMOTEROL TARTRATE
     Indication: CHRONIC OBSTRUCTIVE PULMONARY DISEASE
     Dosage: 15MCG/2ML
     Route: 055
     Dates: end: 201711
  3. ARNUITY ELLIPTA [Concomitant]
     Active Substance: FLUTICASONE FUROATE
     Indication: CHRONIC OBSTRUCTIVE PULMONARY DISEASE
     Dosage: 1 PUFF, QD
     Route: 055
  4. INCRUSE ELLIPTA [Concomitant]
     Active Substance: UMECLIDINIUM BROMIDE
     Indication: CHRONIC OBSTRUCTIVE PULMONARY DISEASE
     Dosage: 1 PUFF, QD
     Route: 055
  5. ALBUTEROL. [Concomitant]
     Active Substance: ALBUTEROL
     Dosage: EMERGENCY INHALATION, NEBULIZER, AS NECESSARY
     Route: 055

REACTIONS (6)
  - Insomnia [Not Recovered/Not Resolved]
  - Productive cough [Not Recovered/Not Resolved]
  - Amnesia [Not Recovered/Not Resolved]
  - Cognitive disorder [Not Recovered/Not Resolved]
  - Dyspnoea [Not Recovered/Not Resolved]
  - Cough [Not Recovered/Not Resolved]

NARRATIVE: CASE EVENT DATE: 201711
